FAERS Safety Report 9373812 (Version 1)
Quarter: 2013Q2

REPORT INFORMATION
  Report Type: Spontaneous
  Country: IN (occurrence: IN)
  Receive Date: 20130628
  Receipt Date: 20130628
  Transmission Date: 20140414
  Serious: Yes (Other)
  Sender: FDA-Public Use
  Company Number: PHHY2013IN064192

PATIENT
  Age: 31 Year
  Sex: Male

DRUGS (2)
  1. METRONIDAZOLE [Suspect]
     Indication: HEPATIC AMOEBIASIS
  2. METRONIDAZOLE [Suspect]
     Indication: HEPATIC AMOEBIASIS
     Dosage: 5 DF DAILY
     Route: 048

REACTIONS (11)
  - Peripheral sensory neuropathy [Recovering/Resolving]
  - Cerebellar syndrome [Recovering/Resolving]
  - Dysarthria [Recovered/Resolved]
  - Asthenia [Unknown]
  - Intention tremor [Recovering/Resolving]
  - Hypotonia [Unknown]
  - Coordination abnormal [Recovering/Resolving]
  - Ataxia [Recovered/Resolved]
  - Abasia [Recovered/Resolved]
  - Acute disseminated encephalomyelitis [Recovering/Resolving]
  - Diarrhoea [Recovered/Resolved]
